FAERS Safety Report 10228600 (Version 1)
Quarter: 2014Q2

REPORT INFORMATION
  Report Type: Spontaneous
  Country: US (occurrence: US)
  Receive Date: 20140610
  Receipt Date: 20140610
  Transmission Date: 20141212
  Serious: No
  Sender: FDA-Public Use
  Company Number: US-ASTRAZENECA-2014SE39121

PATIENT
  Age: 23590 Day
  Sex: Female
  Weight: 81.6 kg

DRUGS (2)
  1. NEXIUM 24HR [Suspect]
     Indication: GASTROINTESTINAL DISORDER
     Dosage: UNKNOWN DOSE ONCE A DAY
     Route: 048
     Dates: start: 20140529
  2. NEXIUM 24HR [Suspect]
     Indication: GASTRIC ULCER
     Dosage: UNKNOWN DOSE ONCE A DAY
     Route: 048
     Dates: start: 20140529

REACTIONS (3)
  - Nausea [Unknown]
  - Vomiting [Unknown]
  - Intentional product misuse [Unknown]
